FAERS Safety Report 9170142 (Version 1)
Quarter: 2013Q1

REPORT INFORMATION
  Report Type: Spontaneous
  Country: US (occurrence: None)
  Receive Date: 20130314
  Receipt Date: 20130314
  Transmission Date: 20140127
  Serious: Yes (Hospitalization)
  Sender: FDA-Public Use
  Company Number: None

PATIENT
  Age: 56 Year
  Sex: Female
  Weight: 92.99 kg

DRUGS (1)
  1. OPTIRAY [Suspect]
     Indication: SCAN WITH CONTRAST
     Route: 040
     Dates: start: 20121121, end: 20121121

REACTIONS (8)
  - Anaphylactoid reaction [None]
  - Arrhythmia [None]
  - Diarrhoea [None]
  - Rash [None]
  - Urticaria [None]
  - Hypokalaemia [None]
  - Tuberculin test positive [None]
  - Drug hypersensitivity [None]
